FAERS Safety Report 20103010 (Version 1)
Quarter: 2021Q4

REPORT INFORMATION
  Report Type: Report from Study
  Country: AR (occurrence: AR)
  Receive Date: 20211123
  Receipt Date: 20211123
  Transmission Date: 20220303
  Serious: Yes (Other)
  Sender: FDA-Public Use
  Company Number: AR-NOVARTISPH-NVSC2021AR265930

PATIENT
  Sex: Male

DRUGS (1)
  1. COSENTYX [Suspect]
     Active Substance: SECUKINUMAB
     Indication: Psoriasis
     Dosage: 300 MG, QMO
     Route: 058
     Dates: start: 20191017, end: 20200701

REACTIONS (5)
  - Diabetes mellitus [Unknown]
  - Obesity [Unknown]
  - Cardiovascular disorder [Unknown]
  - Gait disturbance [Unknown]
  - Dyspnoea [Unknown]
